FAERS Safety Report 7122238-5 (Version None)
Quarter: 2010Q4

REPORT INFORMATION
  Report Type: 
  Country: None (occurrence: None)
  Receive Date: 20101124
  Receipt Date: 20101117
  Transmission Date: 20110411
  Serious: Yes (Death, Life-Threatening, Hospitalization)
  Sender: FDA-Public Use
  Company Number: US-JNJFOC-20101106403

PATIENT
  Age: 62 Year
  Sex: Female

DRUGS (2)
  1. INFLIXIMAB, RECOMBINANT [Suspect]
     Indication: PSORIATIC ARTHROPATHY
     Route: 042
  2. METHOTREXATE [Concomitant]
     Indication: PSORIATIC ARTHROPATHY

REACTIONS (8)
  - BACTERIAL INFECTION [None]
  - CARDIAC TAMPONADE [None]
  - ELECTROMECHANICAL DISSOCIATION [None]
  - INTRACARDIAC THROMBUS [None]
  - MYOCARDIAC ABSCESS [None]
  - MYOCARDIAL INFARCTION [None]
  - MYOCARDITIS BACTERIAL [None]
  - VENTRICLE RUPTURE [None]
